FAERS Safety Report 13301938 (Version 1)
Quarter: 2017Q1

REPORT INFORMATION
  Report Type: Spontaneous
  Country: JP (occurrence: JP)
  Receive Date: 20170307
  Receipt Date: 20170307
  Transmission Date: 20170428
  Serious: Yes (Life-Threatening, Other)
  Sender: FDA-Public Use
  Company Number: JP-PFIZER INC-2017071078

PATIENT
  Age: 78 Year
  Sex: Male
  Weight: 76 kg

DRUGS (13)
  1. OMEPRAL /00661201/ [Concomitant]
     Active Substance: OMEPRAZOLE
     Dosage: 20 MG, 1X/DAY
     Route: 048
     Dates: start: 20101209
  2. GASLON [Concomitant]
     Active Substance: IRSOGLADINE MALEATE
     Dosage: 4 MG, 2X/DAY
     Dates: start: 20170106
  3. ACTOS [Concomitant]
     Active Substance: PIOGLITAZONE HYDROCHLORIDE
     Dosage: 15 MG, 1X/DAY
     Route: 048
     Dates: start: 20101209
  4. OLMETEC [Concomitant]
     Active Substance: OLMESARTAN MEDOXOMIL
     Dosage: 10 MG, 1X/DAY
     Route: 048
     Dates: start: 20101209
  5. CRESTOR [Concomitant]
     Active Substance: ROSUVASTATIN CALCIUM
     Dosage: 2.5 MG, 1X/DAY
     Route: 048
     Dates: start: 20101209
  6. LYRICA [Suspect]
     Active Substance: PREGABALIN
     Indication: POST HERPETIC NEURALGIA
     Dosage: 25 MG, 2X/DAY (MORNING AND EVENING)
     Route: 048
     Dates: start: 20161217
  7. METHYCOBAL [Concomitant]
     Active Substance: METHYLCOBALAMIN
     Dosage: 3 DF, 3X/DAY
     Route: 048
     Dates: start: 20161217
  8. PLAVIX [Concomitant]
     Active Substance: CLOPIDOGREL BISULFATE
     Dosage: 75 MG, 1X/DAY
     Route: 048
     Dates: start: 20101209
  9. URINORM /00227201/ [Concomitant]
     Active Substance: BENZBROMARONE
     Dosage: 25 MG, 1X/DAY
     Route: 048
     Dates: start: 20151204
  10. LYRICA [Suspect]
     Active Substance: PREGABALIN
     Dosage: 75 MG, 2X/DAY(MORNING AND EVENING)
     Dates: start: 20170106, end: 20170123
  11. NEUROTROPIN [Concomitant]
     Active Substance: NEUROTROPIN
     Dosage: 4 DF, 2X/DAY
     Route: 048
     Dates: start: 20161217
  12. BAYASPIN [Concomitant]
     Dosage: 100 MG, 1X/DAY
     Route: 048
     Dates: start: 20101209
  13. CELECOX [Concomitant]
     Active Substance: CELECOXIB
     Dosage: 200 MG, 2X/DAY
     Dates: start: 20170106

REACTIONS (1)
  - Cardiac failure congestive [Recovering/Resolving]

NARRATIVE: CASE EVENT DATE: 20170125
